FAERS Safety Report 7270444-1 (Version None)
Quarter: 2011Q1

REPORT INFORMATION
  Report Type: 
  Country: None (occurrence: None)
  Receive Date: 20110202
  Receipt Date: 20110126
  Transmission Date: 20110831
  Serious: Yes (Death, Hospitalization, Other)
  Sender: FDA-Public Use
  Company Number: IE-BRISTOL-MYERS SQUIBB COMPANY-15461924

PATIENT
  Age: 64 Year
  Sex: Male
  Weight: 76 kg

DRUGS (9)
  1. ZANIDIP [Concomitant]
     Dates: start: 20080101
  2. LACTULOSE [Concomitant]
     Dates: start: 20101101
  3. SENNA [Concomitant]
     Dosage: 1DF=2 TABS 2 IN 1 D
     Dates: start: 20101101
  4. OLMESARTAN MEDOXOMIL [Concomitant]
     Dosage: OMESAR
     Dates: start: 20080101
  5. CILENGITIDE [Suspect]
     Indication: NON-SMALL CELL LUNG CANCER
     Dosage: RECENT DOSE(3RD):14DEC10
     Route: 042
     Dates: start: 20101130, end: 20101214
  6. GEMCITABINE [Suspect]
     Indication: NON-SMALL CELL LUNG CANCER
     Dosage: DAY 1 AND DAY 8 OF EACH 3WK CYCLE; TEMP DISCONTINUED ON 07DEC2010
     Route: 042
     Dates: start: 20101130, end: 20101130
  7. CETUXIMAB [Suspect]
     Indication: NON-SMALL CELL LUNG CANCER
     Dosage: STRENGTH:5MG/ML RECENT DOSE(3RD):14DEC10 ONGOING
     Route: 042
     Dates: start: 20101130, end: 20101214
  8. CISPLATIN [Suspect]
     Indication: NON-SMALL CELL LUNG CANCER
     Route: 042
     Dates: start: 20101130, end: 20101130
  9. ASPIRIN [Concomitant]
     Dates: start: 20080101

REACTIONS (2)
  - PULMONARY THROMBOSIS [None]
  - PULMONARY EMBOLISM [None]
